FAERS Safety Report 19878441 (Version 1)
Quarter: 2021Q3

REPORT INFORMATION
  Report Type: Report from Study
  Country: CA (occurrence: CA)
  Receive Date: 20210924
  Receipt Date: 20210924
  Transmission Date: 20211014
  Serious: Yes (Other)
  Sender: FDA-Public Use
  Company Number: CA-HLS-202107093

PATIENT
  Sex: Female

DRUGS (1)
  1. CLOZARIL [Suspect]
     Active Substance: CLOZAPINE
     Indication: PRODUCT USED FOR UNKNOWN INDICATION
     Route: 048
     Dates: start: 20190307

REACTIONS (4)
  - Sinus tachycardia [Unknown]
  - Sinus rhythm [Unknown]
  - Electrocardiogram T wave inversion [Unknown]
  - Electrocardiogram T wave amplitude decreased [Unknown]
